FAERS Safety Report 10580032 (Version 11)
Quarter: 2020Q3

REPORT INFORMATION
  Report Type: Spontaneous
  Country: CA (occurrence: CA)
  Receive Date: 20141112
  Receipt Date: 20200918
  Transmission Date: 20201102
  Serious: Yes (Hospitalization, Other)
  Sender: FDA-Public Use
  Company Number: CA-PFIZER INC-2014309876

PATIENT
  Age: 54 Year
  Sex: Female
  Weight: 77 kg

DRUGS (40)
  1. CLARITHROMYCIN. [Suspect]
     Active Substance: CLARITHROMYCIN
     Dosage: 20 MILLIGRAM, QD
     Route: 048
  2. CLARITHROMYCIN. [Suspect]
     Active Substance: CLARITHROMYCIN
     Dosage: 75 MILLIGRAM, QD
     Route: 065
  3. CLOPIDOGREL BISULFATE. [Suspect]
     Active Substance: CLOPIDOGREL BISULFATE
     Dosage: UNK
     Route: 065
  4. SULCRATE [Suspect]
     Active Substance: SUCRALFATE
     Dosage: 1000 MILLIGRAM, QD
     Route: 065
  5. ATENOLOL. [Suspect]
     Active Substance: ATENOLOL
     Dosage: 50 MILLIGRAM, QD
     Route: 048
  6. CLARITHROMYCIN. [Suspect]
     Active Substance: CLARITHROMYCIN
     Dosage: 25 MILLIGRAM, BID
     Route: 065
  7. CLOPIDOGREL BISULFATE. [Suspect]
     Active Substance: CLOPIDOGREL BISULFATE
     Dosage: 75 MILLIGRAM, QD
     Route: 065
  8. CRESTOR [Suspect]
     Active Substance: ROSUVASTATIN CALCIUM
     Dosage: UNK
     Route: 065
  9. STELARA [Suspect]
     Active Substance: USTEKINUMAB
     Dosage: UNK
     Route: 065
  10. SULCRATE [Suspect]
     Active Substance: SUCRALFATE
     Dosage: 1000 MILLIGRAM, BID
     Route: 005
  11. EBASTINE [Suspect]
     Active Substance: EBASTINE
     Dosage: 5 MILLIGRAM, QD
     Route: 048
  12. CLARITHROMYCIN. [Suspect]
     Active Substance: CLARITHROMYCIN
     Dosage: 40 MILLIGRAM, QD
     Route: 065
  13. CRESTOR [Suspect]
     Active Substance: ROSUVASTATIN CALCIUM
     Dosage: 20 MILLIGRAM, QD
     Route: 048
  14. ALVESCO [Suspect]
     Active Substance: CICLESONIDE
     Dosage: 400 MICROGRAM
     Route: 055
  15. AERIUS [EBASTINE] [Suspect]
     Active Substance: EBASTINE
     Dosage: 5 MG, QD
     Route: 048
  16. AERIUS [EBASTINE] [Suspect]
     Active Substance: EBASTINE
     Dosage: 50 MG, QD
     Route: 048
  17. DOMPERIDONE [Suspect]
     Active Substance: DOMPERIDONE
     Dosage: 10 MILLIGRAM, BID
     Route: 065
  18. MAVIK [Suspect]
     Active Substance: TRANDOLAPRIL
     Dosage: 2 MILLIGRAM, QD
     Route: 065
  19. PANTOPRAZOLE [Suspect]
     Active Substance: PANTOPRAZOLE
     Dosage: UNK
     Route: 065
  20. ALVESCO [Suspect]
     Active Substance: CICLESONIDE
     Dosage: 400 MILLIGRAM
     Route: 065
  21. IMIPRAMINE HYDROCHLORIDE. [Suspect]
     Active Substance: IMIPRAMINE HYDROCHLORIDE
     Dosage: 25 MILLIGRAM, BID
     Route: 065
  22. IMIPRAMINE HYDROCHLORIDE. [Suspect]
     Active Substance: IMIPRAMINE HYDROCHLORIDE
     Dosage: UNK
     Route: 065
  23. AERIUS (DESLORATADINE) [Suspect]
     Active Substance: DESLORATADINE
     Dosage: 50 MILLIGRAM, QD
     Route: 048
  24. PANTOPRAZOLE [Suspect]
     Active Substance: PANTOPRAZOLE
     Dosage: 40 MILLIGRAM, QD
     Route: 042
  25. DETROL LA [Suspect]
     Active Substance: TOLTERODINE TARTRATE
     Dosage: 4 MILLIGRAM, QD
     Route: 065
  26. SULCRATE [Suspect]
     Active Substance: SUCRALFATE
     Dosage: 10 MILLIGRAM, QD
     Route: 005
  27. DETROL LA [Suspect]
     Active Substance: TOLTERODINE TARTRATE
     Dosage: 40 MILLIGRAM, QD
     Route: 065
  28. DETROL LA [Suspect]
     Active Substance: TOLTERODINE TARTRATE
     Dosage: 4 MILLIGRAM, QD
     Route: 065
  29. ALVESCO [Suspect]
     Active Substance: CICLESONIDE
     Dosage: 50 MILLIGRAM, QD
     Route: 055
  30. SULCRATE [Suspect]
     Active Substance: SUCRALFATE
     Dosage: 1000 MILLIGRAM, BID
     Route: 065
  31. AERIUS (DESLORATADINE) [Suspect]
     Active Substance: DESLORATADINE
     Dosage: 10 MILLIGRAM, QD
     Route: 065
  32. SINGULAIR [Concomitant]
     Active Substance: MONTELUKAST SODIUM
     Dosage: UNK
     Route: 065
  33. CLARITHROMYCIN. [Suspect]
     Active Substance: CLARITHROMYCIN
     Dosage: 100 MILLIGRAM, QD
     Route: 065
  34. AERIUS [EBASTINE] [Suspect]
     Active Substance: EBASTINE
     Dosage: 10 MG, QD
     Route: 065
  35. EZETROL [Suspect]
     Active Substance: EZETIMIBE
     Dosage: 10 MILLIGRAM, QD
     Route: 048
  36. AERIUS (DESLORATADINE) [Suspect]
     Active Substance: DESLORATADINE
     Dosage: 5 MILLIGRAM, QD
     Route: 048
  37. ATENOLOL. [Suspect]
     Active Substance: ATENOLOL
     Dosage: UNK
     Route: 065
  38. PANTOPRAZOLE [Suspect]
     Active Substance: PANTOPRAZOLE
     Dosage: 40 MILLIGRAM, QD
     Route: 065
  39. DOMPERIDONE [Suspect]
     Active Substance: DOMPERIDONE
     Dosage: 10 MILLIGRAM, QD
     Route: 065
  40. ECOTRIN [Suspect]
     Active Substance: ASPIRIN
     Dosage: 1 DF, 1X/DAY
     Route: 065

REACTIONS (3)
  - Hallucination, auditory [Recovered/Resolved]
  - Paranoia [Recovered/Resolved]
  - Psychotic disorder [Recovered/Resolved]
